FAERS Safety Report 4342734-3 (Version None)
Quarter: 2004Q2

REPORT INFORMATION
  Report Type: 
  Country: None (occurrence: None)
  Receive Date: 20040409
  Receipt Date: 20030318
  Transmission Date: 20050107
  Serious: No
  Sender: FDA-Public Use
  Company Number: 03P-163-0213874-00

PATIENT
  Sex: Female

DRUGS (2)
  1. SEMISODIUM VALPROATE (DEPAKOTE) (DIVALPROEX SODIUM) (DIVALPROEX SODIUM [Suspect]
     Indication: CONVULSION
     Dosage: PER ORAL
     Route: 048
  2. BUPROPION HYDROCHLORIDE [Suspect]
     Indication: ILL-DEFINED DISORDER
     Dosage: PER ORAL
     Route: 048

REACTIONS (1)
  - CONVULSION [None]
